FAERS Safety Report 18432785 (Version 11)
Quarter: 2021Q3

REPORT INFORMATION
  Report Type: Spontaneous
  Country: US (occurrence: US)
  Receive Date: 20201027
  Receipt Date: 20210831
  Transmission Date: 20211014
  Serious: Yes (Other)
  Sender: FDA-Public Use
  Company Number: US-GLAXOSMITHKLINE-US2020AMR211779

PATIENT
  Sex: Female

DRUGS (7)
  1. ZEJULA [Suspect]
     Active Substance: NIRAPARIB
     Indication: OVARIAN CANCER
     Dosage: 200 MG, QD
     Route: 048
     Dates: start: 20201011
  2. ZEJULA [Suspect]
     Active Substance: NIRAPARIB
     Dosage: 200 MG, QD
     Route: 048
  3. ZEJULA [Suspect]
     Active Substance: NIRAPARIB
     Dosage: 200 MG, QD
  4. ZEJULA [Suspect]
     Active Substance: NIRAPARIB
     Dosage: 200 MG, QD (QPM)
  5. ZEJULA [Suspect]
     Active Substance: NIRAPARIB
     Dosage: 200 MG, QD
     Route: 048
  6. ZEJULA [Suspect]
     Active Substance: NIRAPARIB
     Dosage: 200 MG, QD
     Route: 048
  7. ZEJULA [Suspect]
     Active Substance: NIRAPARIB
     Dosage: 200 MG, QD (QPM)

REACTIONS (17)
  - Nausea [Not Recovered/Not Resolved]
  - Renal impairment [Not Recovered/Not Resolved]
  - Pain [Recovered/Resolved]
  - Vomiting [Not Recovered/Not Resolved]
  - Renal function test abnormal [Recovering/Resolving]
  - Constipation [Recovering/Resolving]
  - Product dose omission in error [Not Recovered/Not Resolved]
  - Multiple allergies [Recovered/Resolved]
  - Fatigue [Not Recovered/Not Resolved]
  - Blood creatine increased [Recovering/Resolving]
  - Headache [Recovered/Resolved]
  - Alcohol interaction [Unknown]
  - Sleep disorder [Not Recovered/Not Resolved]
  - Anaemia [Recovering/Resolving]
  - Insomnia [Unknown]
  - Chills [Recovered/Resolved]
  - Blood pressure increased [Recovering/Resolving]
